FAERS Safety Report 24143288 (Version 1)
Quarter: 2024Q3

REPORT INFORMATION
  Report Type: Spontaneous
  Country: HU (occurrence: HU)
  Receive Date: 20240726
  Receipt Date: 20240726
  Transmission Date: 20241017
  Serious: Yes (Hospitalization)
  Sender: Harrow Health
  Company Number: HU-IMP-2024000524

PATIENT
  Age: 66 Year
  Sex: Male

DRUGS (4)
  1. MAXIDEX [Suspect]
     Active Substance: DEXAMETHASONE
     Indication: Parinaud syndrome
     Route: 047
  2. LEVOFLOXACIN [Suspect]
     Active Substance: LEVOFLOXACIN
     Indication: Parinaud syndrome
     Route: 047
  3. AMOXICILLIN\CLAVULANIC ACID [Suspect]
     Active Substance: AMOXICILLIN\CLAVULANIC ACID
     Indication: Lymphadenopathy
     Route: 042
  4. METRONIDAZOLE [Suspect]
     Active Substance: METRONIDAZOLE
     Indication: Lymphadenopathy
     Route: 042

REACTIONS (1)
  - Drug ineffective [Unknown]
